FAERS Safety Report 9713409 (Version 1)
Quarter: 2013Q4

REPORT INFORMATION
  Report Type: Spontaneous
  Country: US (occurrence: US)
  Receive Date: 20131126
  Receipt Date: 20131126
  Transmission Date: 20140711
  Serious: No
  Sender: FDA-Public Use
  Company Number: US-009507513-1311USA010403

PATIENT
  Age: 38 Year
  Sex: Female

DRUGS (4)
  1. CLARITIN [Suspect]
     Indication: HYPERSENSITIVITY
     Dosage: 10 MG, PRN
     Route: 048
  2. PROZAC [Suspect]
     Indication: DEPRESSION
     Dosage: 10 MG, QD
  3. ADDERALL TABLETS [Concomitant]
     Indication: ATTENTION DEFICIT/HYPERACTIVITY DISORDER
     Dosage: 10 MG, QD
  4. PRILOSEC [Concomitant]
     Indication: PRODUCT USED FOR UNKNOWN INDICATION
     Dosage: 20 MG, BID

REACTIONS (1)
  - Somnolence [Recovered/Resolved]
